FAERS Safety Report 5295780-X (Version None)
Quarter: 2007Q1

REPORT INFORMATION
  Report Type: 
  Country: None (occurrence: None)
  Receive Date: 20070201
  Receipt Date: 20061027
  Transmission Date: 20070707
  Serious: No
  Sender: FDA-Public Use
  Company Number: 2006PV024061

PATIENT
  Age: 51 Year
  Sex: Female
  Weight: 1036.4692 kg

DRUGS (5)
  1. BYETTA [Suspect]
     Indication: DIABETES MELLITUS NON-INSULIN-DEPENDENT
     Dosage: 5 MCG;BID;SC
     Route: 058
     Dates: start: 20061001
  2. HUMALOG [Concomitant]
  3. ACTOPLUS MET [Concomitant]
  4. PROTONIX [Concomitant]
  5. ALTACE [Concomitant]

REACTIONS (3)
  - DRUG EFFECT DECREASED [None]
  - NAUSEA [None]
  - ORAL MUCOSAL BLISTERING [None]
